FAERS Safety Report 8600428-X (Version None)
Quarter: 2012Q3

REPORT INFORMATION
  Report Type: 
  Country: None (occurrence: None)
  Receive Date: 20120817
  Receipt Date: 20120807
  Transmission Date: 20120928
  Serious: No
  Sender: FDA-Public Use
  Company Number: US-CELGENEUS-163-21880-12072130

PATIENT
  Sex: Female
  Weight: 57.204 kg

DRUGS (7)
  1. VITAMIN TAB [Concomitant]
     Route: 065
  2. TRAMADOL HCL [Concomitant]
     Indication: PAIN
     Route: 065
  3. LORAZEPAM [Concomitant]
     Route: 065
  4. COREG [Concomitant]
     Route: 065
  5. FISH OIL [Concomitant]
     Route: 065
  6. REVLIMID [Suspect]
     Indication: MULTIPLE MYELOMA
     Dosage: 25 MILLIGRAM
     Route: 048
     Dates: start: 20111001, end: 20120101
  7. CALCIUM [Concomitant]
     Route: 065

REACTIONS (2)
  - MUCOSAL INFLAMMATION [None]
  - MULTIPLE MYELOMA [None]
